FAERS Safety Report 6986260-1 (Version None)
Quarter: 2010Q3

REPORT INFORMATION
  Report Type: 
  Country: None (occurrence: None)
  Receive Date: 20100915
  Receipt Date: 20090731
  Transmission Date: 20110219
  Serious: No
  Sender: FDA-Public Use
  Company Number: US-WYE-H09768009

PATIENT
  Sex: Male
  Weight: 154.36 kg

DRUGS (3)
  1. PRISTIQ [Suspect]
     Indication: DEPRESSION
     Route: 048
     Dates: start: 20090605
  2. AMBIEN CR [Concomitant]
  3. MICARDIS [Concomitant]

REACTIONS (4)
  - DIARRHOEA [None]
  - NIGHTMARE [None]
  - SOMNAMBULISM [None]
  - SOMNOLENCE [None]
